FAERS Safety Report 4274789-9 (Version None)
Quarter: 2004Q1

REPORT INFORMATION
  Report Type: 
  Country: None (occurrence: None)
  Receive Date: 20040120
  Receipt Date: 20030424
  Transmission Date: 20041129
  Serious: Yes (Death, Other)
  Sender: FDA-Public Use
  Company Number: JP-BRISTOL-MYERS SQUIBB COMPANY-12260816

PATIENT
  Age: 79 Year
  Sex: Female

DRUGS (8)
  1. SINEMET [Suspect]
     Indication: PARKINSON'S DISEASE
     Dosage: 10/100MG TID
     Route: 048
  2. AMANTADINE HCL [Interacting]
     Indication: PARKINSON'S DISEASE
     Dosage: 50MG QID
     Route: 048
     Dates: end: 20030422
  3. ASPIRIN [Concomitant]
  4. ALPRAZOLAM [Concomitant]
  5. ISOSORBIDE MONONITRATE [Concomitant]
  6. MAGNESIUM OXIDE [Concomitant]
  7. OMEPRAZOLE [Concomitant]
  8. VALPROATE SODIUM [Concomitant]

REACTIONS (11)
  - AGGRESSION [None]
  - BLOOD CREATININE INCREASED [None]
  - BLOOD UREA INCREASED [None]
  - DEHYDRATION [None]
  - DEPRESSED LEVEL OF CONSCIOUSNESS [None]
  - DRUG INTERACTION [None]
  - DRUG LEVEL INCREASED [None]
  - ILEUS [None]
  - PARKINSONISM [None]
  - SEPSIS [None]
  - SOMNOLENCE [None]
